FAERS Safety Report 9363669 (Version 5)
Quarter: 2013Q4

REPORT INFORMATION
  Report Type: Spontaneous
  Country: FR (occurrence: FR)
  Receive Date: 20130624
  Receipt Date: 20131029
  Transmission Date: 20140711
  Serious: Yes (Hospitalization)
  Sender: FDA-Public Use
  Company Number: FR-JNJFOC-20130607842

PATIENT
  Age: 45 Year
  Sex: Female

DRUGS (3)
  1. XEPLION [Suspect]
     Indication: SCHIZOAFFECTIVE DISORDER
     Route: 030
     Dates: start: 20130211, end: 20130510
  2. CYMBALTA [Concomitant]
     Route: 065
     Dates: start: 20121023
  3. CYMBALTA [Concomitant]
     Route: 065
     Dates: start: 20121023

REACTIONS (2)
  - Hypomania [Recovering/Resolving]
  - Mania [Recovering/Resolving]
